FAERS Safety Report 6233974-7 (Version None)
Quarter: 2009Q2

REPORT INFORMATION
  Report Type: 
  Country: None (occurrence: None)
  Receive Date: 20090618
  Receipt Date: 20090610
  Transmission Date: 20091009
  Serious: Yes (Disabling, Other)
  Sender: FDA-Public Use
  Company Number: BR-BAYER-BR-2006-035053

PATIENT
  Age: 39 Year
  Sex: Female

DRUGS (3)
  1. BETAFERON [Suspect]
     Indication: SECONDARY PROGRESSIVE MULTIPLE SCLEROSIS
     Dosage: UNIT DOSE: 9.6 MIU
     Route: 058
     Dates: start: 20021001
  2. BETAFERON [Suspect]
     Dosage: UNIT DOSE: 8 MIU
     Route: 058
     Dates: start: 19980101
  3. METHOTREXATE [Concomitant]
     Indication: MULTIPLE SCLEROSIS
     Dosage: 1 TABLET EVERY MONDAY MORNING, 1 TABLET EVERY THURSDAY MORNING
     Route: 048
     Dates: start: 20060101

REACTIONS (6)
  - ARTHRALGIA [None]
  - BLINDNESS [None]
  - INJECTION SITE DISCOLOURATION [None]
  - INJECTION SITE ERYTHEMA [None]
  - INJECTION SITE REACTION [None]
  - MULTIPLE SCLEROSIS [None]
